FAERS Safety Report 5511606-0 (Version None)
Quarter: 2007Q4

REPORT INFORMATION
  Report Type: 
  Country: None (occurrence: None)
  Receive Date: 20071109
  Receipt Date: 20071030
  Transmission Date: 20080405
  Serious: Yes (Other)
  Sender: FDA-Public Use
  Company Number: CA-ROCHE-480551

PATIENT
  Age: 33 Year
  Sex: Female

DRUGS (1)
  1. ACCUTANE [Suspect]
     Indication: ACNE
     Route: 048
     Dates: start: 20000101, end: 20000101

REACTIONS (4)
  - ARTHRALGIA [None]
  - CARPAL TUNNEL SYNDROME [None]
  - COMPARTMENT SYNDROME [None]
  - MYALGIA [None]
